FAERS Safety Report 5451565-2 (Version None)
Quarter: 2007Q3

REPORT INFORMATION
  Report Type: 
  Country: None (occurrence: None)
  Receive Date: 20070913
  Receipt Date: 20070906
  Transmission Date: 20080115
  Serious: Yes (Hospitalization)
  Sender: FDA-Public Use
  Company Number: US-ROXANE LABORATORIES, INC-2007-BP-20702RO

PATIENT
  Age: 45 Year
  Sex: Female

DRUGS (10)
  1. MORPHINE [Suspect]
     Indication: PAIN
  2. HYDROMORPHONE HCL [Suspect]
     Indication: ANALGESIA
     Route: 042
  3. HYDROMORPHONE HCL [Suspect]
     Route: 042
  4. LORAZEPAM [Suspect]
     Indication: MUSCULOSKELETAL DISCOMFORT
     Route: 048
  5. METHADONE [Suspect]
     Indication: PAIN
  6. METHADONE [Suspect]
  7. OXYCODONE HCL [Suspect]
     Indication: PAIN
  8. GABAPENTIN [Suspect]
     Indication: ANALGESIA
  9. FENTANYL TRANSDERMAL SYSTEM [Suspect]
     Indication: ANALGESIA
     Route: 062
  10. ANTIEMETIC [Concomitant]
     Indication: PROPHYLAXIS OF NAUSEA AND VOMITING
     Route: 048

REACTIONS (5)
  - BREAKTHROUGH PAIN [None]
  - HYPERAESTHESIA [None]
  - INADEQUATE ANALGESIA [None]
  - NAUSEA [None]
  - VOMITING [None]
